FAERS Safety Report 19089537 (Version 2)
Quarter: 2021Q2

REPORT INFORMATION
  Report Type: Report from Study
  Country: KE (occurrence: KE)
  Receive Date: 20210403
  Receipt Date: 20210512
  Transmission Date: 20210717
  Serious: Yes (Death, Life-Threatening, Hospitalization, Other)
  Sender: FDA-Public Use
  Company Number: KE-CIPLA LTD.-2021KE02504

PATIENT

DRUGS (5)
  1. LOPINAVIR/RITONAVIR [Suspect]
     Active Substance: LOPINAVIR\RITONAVIR
     Dosage: 1 DOSAGE FORM, BID (80/20 MG)
     Route: 048
     Dates: start: 20170814, end: 20171027
  2. LOPINAVIR/RITONAVIR [Suspect]
     Active Substance: LOPINAVIR\RITONAVIR
     Indication: HIV INFECTION
     Dosage: 1 DOSAGE FORM, BID (80/20 MG)
     Route: 048
     Dates: start: 20170508, end: 20170726
  3. KALETRA [Suspect]
     Active Substance: LOPINAVIR\RITONAVIR
     Indication: HIV INFECTION
     Dosage: 1 MILLILITER, BID
     Route: 048
     Dates: start: 20170726, end: 20171027
  4. COTRIMOXAZOLE [Concomitant]
     Active Substance: SULFAMETHOXAZOLE\TRIMETHOPRIM
     Indication: PROPHYLAXIS
     Dosage: UNK
     Route: 065
     Dates: start: 20170427
  5. ABACAVIR/LAMIVUDINE [Suspect]
     Active Substance: ABACAVIR\LAMIVUDINE
     Indication: HIV INFECTION
     Dosage: 1 DOSAGE FORM, BID (60/30 MG)
     Route: 048
     Dates: start: 20170508, end: 20171027

REACTIONS (5)
  - Sepsis [Recovered/Resolved]
  - Upper respiratory tract infection [Recovered/Resolved]
  - Vomiting [Recovered/Resolved]
  - Malnutrition [None]
  - Pneumonia [Recovered/Resolved]

NARRATIVE: CASE EVENT DATE: 20170524
